FAERS Safety Report 25501843 (Version 1)
Quarter: 2025Q3

REPORT INFORMATION
  Report Type: Spontaneous
  Country: EU (occurrence: EU)
  Receive Date: 20250702
  Receipt Date: 20250702
  Transmission Date: 20251021
  Serious: Yes (Death, Life-Threatening, Hospitalization, Other)
  Sender: ALKEM
  Company Number: EU-ALKEM LABORATORIES LIMITED-DE-ALKEM-2025-06654

PATIENT
  Age: 65 Year
  Sex: Male
  Weight: 88 kg

DRUGS (9)
  1. MYCOPHENOLATE MOFETIL [Suspect]
     Active Substance: MYCOPHENOLATE MOFETIL
     Indication: Graft versus host disease
     Dosage: 2500 MILLIGRAM, QD (EVERY 1 DAY)
     Route: 042
     Dates: start: 20211029, end: 20211209
  2. TACROLIMUS [Suspect]
     Active Substance: TACROLIMUS
     Indication: Product used for unknown indication
     Route: 048
  3. BUSULFEX [Suspect]
     Active Substance: BUSULFAN
     Indication: Surgical preconditioning
     Dosage: 247 MILLIGRAM, QD (EVERY 1 DAY)
     Route: 042
     Dates: start: 20211022, end: 20211024
  4. CYCLOSPORINE [Suspect]
     Active Substance: CYCLOSPORINE
     Indication: Graft versus host disease
     Dosage: 700 MILLIGRAM, QD (EVERY 1 DAY)
     Route: 042
     Dates: start: 20211026, end: 20211128
  5. FLUDARABINE [Suspect]
     Active Substance: FLUDARABINE PHOSPHATE
     Indication: Surgical preconditioning
     Dosage: 60 MILLIGRAM, QD (EVERY 1 DAY)
     Route: 042
     Dates: start: 20211019, end: 20211024
  6. GRAFALON [Suspect]
     Active Substance: LAPINE T-LYMPHOCYTE IMMUNE GLOBULIN
     Indication: Graft versus host disease
     Route: 065
     Dates: start: 20211023, end: 20211023
  7. GRAFALON [Suspect]
     Active Substance: LAPINE T-LYMPHOCYTE IMMUNE GLOBULIN
     Indication: Allogenic stem cell transplantation
     Route: 065
     Dates: start: 20211024, end: 20211024
  8. GRAFALON [Suspect]
     Active Substance: LAPINE T-LYMPHOCYTE IMMUNE GLOBULIN
     Route: 065
     Dates: start: 20211025, end: 20211025
  9. GRAFALON [Suspect]
     Active Substance: LAPINE T-LYMPHOCYTE IMMUNE GLOBULIN
     Route: 065
     Dates: start: 20211026, end: 20211027

REACTIONS (4)
  - Post transplant lymphoproliferative disorder [Fatal]
  - Human herpesvirus 6 encephalitis [Recovered/Resolved]
  - Epstein-Barr virus infection reactivation [Recovered/Resolved]
  - Colitis herpes [Unknown]

NARRATIVE: CASE EVENT DATE: 20211117
